FAERS Safety Report 5344887-7 (Version None)
Quarter: 2007Q2

REPORT INFORMATION
  Report Type: 
  Country: None (occurrence: None)
  Receive Date: 20070416
  Receipt Date: 20070119
  Transmission Date: 20071010
  Serious: No
  Sender: FDA-Public Use
  Company Number: 2007SP000224

PATIENT
  Age: 43 Year
  Sex: Female
  Weight: 99.7913 kg

DRUGS (2)
  1. LUNESTA [Suspect]
     Indication: INITIAL INSOMNIA
     Dosage: 3 MG; ORAL
     Route: 048
     Dates: start: 20070117, end: 20070118
  2. LYRICA [Concomitant]

REACTIONS (2)
  - DRUG INEFFECTIVE [None]
  - INSOMNIA [None]
